FAERS Safety Report 7744670-9 (Version None)
Quarter: 2011Q3

REPORT INFORMATION
  Report Type: 
  Country: None (occurrence: None)
  Receive Date: 20110912
  Receipt Date: 20110906
  Transmission Date: 20111222
  Serious: Yes (Other)
  Sender: FDA-Public Use
  Company Number: PHEH2011US03692

PATIENT
  Sex: Male
  Weight: 108.25 kg

DRUGS (1)
  1. EXJADE [Suspect]
     Indication: NEOPLASM
     Dosage: 1500 MG, DAILY
     Route: 048
     Dates: start: 20110204

REACTIONS (1)
  - LARGE GRANULAR LYMPHOCYTOSIS [None]
